FAERS Safety Report 5366843-5 (Version None)
Quarter: 2007Q2

REPORT INFORMATION
  Report Type: 
  Country: None (occurrence: None)
  Receive Date: 20070622
  Receipt Date: 20061006
  Transmission Date: 20071010
  Serious: No
  Sender: FDA-Public Use
  Company Number: US-ASTRAZENECA-2006UW19428

PATIENT
  Age: 48 Year
  Sex: Female
  Weight: 56.7 kg

DRUGS (1)
  1. RHINOCORT [Suspect]
     Indication: HYPERSENSITIVITY
     Dosage: EACH NOSTRIL
     Route: 045
     Dates: start: 20020101, end: 20060501

REACTIONS (4)
  - BLADDER DISORDER [None]
  - BLADDER PAIN [None]
  - POLLAKIURIA [None]
  - URINARY RETENTION [None]
